FAERS Safety Report 7299051-1 (Version None)
Quarter: 2011Q1

REPORT INFORMATION
  Report Type: 
  Country: None (occurrence: None)
  Receive Date: 20110217
  Receipt Date: 20110210
  Transmission Date: 20110831
  Serious: Yes (Hospitalization)
  Sender: FDA-Public Use
  Company Number: BR-ABBOTT-11P-020-0705216-00

PATIENT
  Age: 37 Year
  Sex: Female

DRUGS (5)
  1. UNKNOWN CORTICOID THERAPIES [Concomitant]
     Indication: PRODUCT USED FOR UNKNOWN INDICATION
  2. HUMIRA [Suspect]
     Indication: GASTROINTESTINAL FISTULA
  3. PREDNISONE TAB [Concomitant]
     Indication: PRODUCT USED FOR UNKNOWN INDICATION
  4. AZATHIOPRINE [Concomitant]
     Indication: PRODUCT USED FOR UNKNOWN INDICATION
  5. HUMIRA [Suspect]
     Indication: CROHN'S DISEASE
     Dosage: INDUCTION DOSE: 160MG/ 80MG/ 14 DAYS
     Route: 058

REACTIONS (6)
  - CONDITION AGGRAVATED [None]
  - OEDEMA PERIPHERAL [None]
  - GAIT DISTURBANCE [None]
  - ABDOMINAL ABSCESS [None]
  - PAIN IN EXTREMITY [None]
  - TOOTH DISORDER [None]
